FAERS Safety Report 23498613 (Version 2)
Quarter: 2024Q1

REPORT INFORMATION
  Report Type: Spontaneous
  Country: US (occurrence: US)
  Receive Date: 20240207
  Receipt Date: 20240228
  Transmission Date: 20240410
  Serious: No
  Sender: FDA-Public Use
  Company Number: US-HETERO-HET2024US00276

PATIENT
  Age: 77 Year
  Sex: Male
  Weight: 81.633 kg

DRUGS (5)
  1. FENOFIBRATE [Suspect]
     Active Substance: FENOFIBRATE
     Indication: Blood cholesterol abnormal
     Dosage: 145 MILLIGRAM, QD
     Route: 048
  2. FENOFIBRATE [Suspect]
     Active Substance: FENOFIBRATE
     Indication: Blood triglycerides abnormal
  3. CORTISONE [Concomitant]
     Active Substance: CORTISONE
     Indication: Product used for unknown indication
     Dosage: (CORTISONE SHOT) AT NIGHT ON 29-JAN-2024
     Route: 065
  4. IBUPROFEN [Concomitant]
     Active Substance: IBUPROFEN
     Indication: Product used for unknown indication
     Dosage: UNK (HIGH DOSE) AT NIGHT
     Route: 065
  5. EZETIMIBE [Concomitant]
     Active Substance: EZETIMIBE
     Indication: Product used for unknown indication
     Dosage: UNK
     Route: 065

REACTIONS (2)
  - Erythema [Recovered/Resolved]
  - Wrong dose [Unknown]

NARRATIVE: CASE EVENT DATE: 20240130
